FAERS Safety Report 8979990 (Version 1)
Quarter: 2012Q4

REPORT INFORMATION
  Report Type: 
  Country: US (occurrence: US)
  Receive Date: 20121221
  Receipt Date: 20121221
  Transmission Date: 20130627
  Serious: Yes (Other)
  Sender: FDA-Public Use
  Company Number: US-ROCHE-1172623

PATIENT
  Age: 53 Year
  Sex: Female

DRUGS (2)
  1. BONIVA [Suspect]
     Indication: PRODUCT USED FOR UNKNOWN INDICATION
     Route: 048
     Dates: start: 2007
  2. CALCITONIN [Concomitant]
     Route: 045

REACTIONS (1)
  - Bone density decreased [Unknown]
